FAERS Safety Report 14611209 (Version 1)
Quarter: 2018Q1

REPORT INFORMATION
  Report Type: Spontaneous
  Country: FR (occurrence: FR)
  Receive Date: 20180308
  Receipt Date: 20180308
  Transmission Date: 20180509
  Serious: Yes (Hospitalization)
  Sender: FDA-Public Use
  Company Number: FR-MERCK KGAA-2043223

PATIENT
  Age: 67 Year
  Sex: Female
  Weight: 54 kg

DRUGS (1)
  1. NOVOTHYROX [Suspect]
     Active Substance: LEVOTHYROXINE SODIUM
     Indication: HYPOTHYROIDISM
     Route: 048
     Dates: start: 20170501

REACTIONS (7)
  - Decreased appetite [None]
  - Gastrointestinal motility disorder [None]
  - Balance disorder [None]
  - Weight decreased [None]
  - Depression [None]
  - Affective disorder [None]
  - Sleep disorder [None]

NARRATIVE: CASE EVENT DATE: 20170501
